FAERS Safety Report 10534198 (Version 3)
Quarter: 2014Q4

REPORT INFORMATION
  Report Type: Spontaneous
  Country: US (occurrence: None)
  Receive Date: 20141020
  Receipt Date: 20141124
  Transmission Date: 20150529
  Serious: Yes (Hospitalization, Disabling)
  Sender: FDA-Public Use
  Company Number: 2014-US-013136

PATIENT
  Age: 55 Year
  Sex: Female
  Weight: 81.6 kg

DRUGS (11)
  1. XYREM [Suspect]
     Active Substance: SODIUM OXYBATE
     Indication: NARCOLEPSY
     Route: 048
     Dates: start: 200504, end: 200505
  2. GABAPENTIN. [Concomitant]
     Active Substance: GABAPENTIN
  3. LAMOTRIGINE. [Concomitant]
     Active Substance: LAMOTRIGINE
  4. LISINOPRIL. [Concomitant]
     Active Substance: LISINOPRIL
  5. ONDANSETRON [Concomitant]
     Active Substance: ONDANSETRON
  6. METAMUCIL (PLANTAGO OVATA) [Concomitant]
  7. FENOFIBRATE. [Concomitant]
     Active Substance: FENOFIBRATE
  8. PERCOCET (OXYCODONE HYDROCHLORIDE, PARACETAMOL) [Concomitant]
  9. BENZATROPINE [Concomitant]
     Active Substance: BENZTROPINE
  10. DOCUSATE SODIUM. [Concomitant]
     Active Substance: DOCUSATE SODIUM
  11. ATENOLOL. [Concomitant]
     Active Substance: ATENOLOL

REACTIONS (3)
  - Mental disorder [None]
  - Disability [None]
  - Memory impairment [None]

NARRATIVE: CASE EVENT DATE: 201409
